FAERS Safety Report 5419235-4 (Version None)
Quarter: 2007Q3

REPORT INFORMATION
  Report Type: 
  Country: None (occurrence: None)
  Receive Date: 20070817
  Receipt Date: 20070817
  Transmission Date: 20080115
  Serious: Yes (Hospitalization)
  Sender: FDA-Public Use
  Company Number: None

PATIENT
  Age: 77 Year
  Sex: Male
  Weight: 75.2971 kg

DRUGS (5)
  1. ALIMTA [Suspect]
     Dosage: 500MG/M2 Q 3 WKS
     Dates: start: 20070606
  2. ALIMTA [Suspect]
     Dosage: 500MG/M2 Q 3 WKS
     Dates: start: 20070627
  3. ERBITUX [Suspect]
     Dosage: 250MG/M2 DAILY
     Dates: start: 20070530, end: 20070711
  4. RADIATION [Suspect]
     Dates: start: 20070606
  5. RADIATION [Suspect]
     Dates: start: 20070627

REACTIONS (2)
  - FEEDING TUBE COMPLICATION [None]
  - HERPES ZOSTER [None]
